FAERS Safety Report 5735552-2 (Version None)
Quarter: 2008Q2

REPORT INFORMATION
  Report Type: 
  Country: None (occurrence: None)
  Receive Date: 20080508
  Receipt Date: 20070707
  Transmission Date: 20081010
  Serious: Yes (Death)
  Sender: FDA-Public Use
  Company Number: 2007RR-08588

PATIENT
  Age: 54 Year
  Sex: Male

DRUGS (4)
  1. ENALAPRIL MALEATE [Suspect]
     Indication: HYPERTENSION
  2. ATENOLOL [Concomitant]
  3. THIAZIDE (THIAZIDE) [Concomitant]
  4. PROMETHAZINE HYDROCHLORIDE (PROMETHAZINE) [Concomitant]

REACTIONS (6)
  - ANAPHYLACTIC SHOCK [None]
  - ANGIOEDEMA [None]
  - ANOXIC ENCEPHALOPATHY [None]
  - BLOOD PRESSURE INCREASED [None]
  - CARDIO-RESPIRATORY ARREST [None]
  - STRIDOR [None]
